FAERS Safety Report 15662404 (Version 1)
Quarter: 2018Q4

REPORT INFORMATION
  Report Type: Report from Study
  Country: None (occurrence: RO)
  Receive Date: 20181127
  Receipt Date: 20181127
  Transmission Date: 20190205
  Serious: Yes (Other)
  Sender: FDA-Public Use
  Company Number: RO-ABBVIE-18K-135-2566419-00

PATIENT
  Age: 57 Year
  Sex: Female

DRUGS (1)
  1. HUMIRA [Suspect]
     Active Substance: ADALIMUMAB
     Indication: PSORIASIS
     Route: 058
     Dates: start: 20120315

REACTIONS (5)
  - Nasal mucosal disorder [Not Recovered/Not Resolved]
  - Inflammation of wound [Recovered/Resolved]
  - Staphylococcus test positive [Recovered/Resolved]
  - Staphylococcus test positive [Not Recovered/Not Resolved]
  - Nasal inflammation [Not Recovered/Not Resolved]

NARRATIVE: CASE EVENT DATE: 201804
